FAERS Safety Report 4940153-X (Version None)
Quarter: 2006Q1

REPORT INFORMATION
  Report Type: 
  Country: None (occurrence: None)
  Receive Date: 20060310
  Receipt Date: 20060309
  Transmission Date: 20060701
  Serious: Yes (Other)
  Sender: FDA-Public Use
  Company Number: 2006AP01132

PATIENT
  Age: 44 Year

DRUGS (1)
  1. MEROPENEM [Suspect]

REACTIONS (1)
  - DEAFNESS NEUROSENSORY [None]
